FAERS Safety Report 15351851 (Version 3)
Quarter: 2018Q4

REPORT INFORMATION
  Report Type: Spontaneous
  Country: JP (occurrence: JP)
  Receive Date: 20180905
  Receipt Date: 20181101
  Transmission Date: 20190204
  Serious: Yes (Hospitalization)
  Sender: FDA-Public Use
  Company Number: JP-ASTRAZENECA-2018SE13295

PATIENT
  Age: 888 Month
  Sex: Female
  Weight: 32 kg

DRUGS (3)
  1. IRESSA [Suspect]
     Active Substance: GEFITINIB
     Indication: LUNG NEOPLASM MALIGNANT
     Route: 048
     Dates: start: 20121226, end: 20131116
  2. IRESSA [Suspect]
     Active Substance: GEFITINIB
     Indication: LUNG NEOPLASM MALIGNANT
     Route: 048
     Dates: start: 20170210
  3. IRESSA [Suspect]
     Active Substance: GEFITINIB
     Indication: LUNG NEOPLASM MALIGNANT
     Route: 048
     Dates: start: 20131117, end: 20160208

REACTIONS (8)
  - Hypoaesthesia [Not Recovered/Not Resolved]
  - Peripheral vascular disorder [Unknown]
  - Diarrhoea [Not Recovered/Not Resolved]
  - Carcinoembryonic antigen increased [Unknown]
  - Cellulitis [Recovered/Resolved]
  - Anal incontinence [Unknown]
  - Off label use [Unknown]
  - Rash [Not Recovered/Not Resolved]

NARRATIVE: CASE EVENT DATE: 201303
